FAERS Safety Report 22086002 (Version 1)
Quarter: 2023Q1

REPORT INFORMATION
  Report Type: Spontaneous
  Country: US (occurrence: None)
  Receive Date: 20230310
  Receipt Date: 20230310
  Transmission Date: 20230418
  Serious: Yes (Hospitalization)
  Sender: FDA-Public Use
  Company Number: None

PATIENT
  Age: 13 Month
  Sex: Female

DRUGS (3)
  1. SILDENAFIL [Suspect]
     Active Substance: SILDENAFIL
     Indication: Hypoxia
     Dosage: FREQUENCY : TWICE A DAY;?
     Route: 048
     Dates: start: 202209
  2. SILDENAFIL [Suspect]
     Active Substance: SILDENAFIL
     Indication: Hypoplastic left heart syndrome
  3. SILDENAFIL [Suspect]
     Active Substance: SILDENAFIL
     Indication: Premature baby

REACTIONS (1)
  - Influenza [None]

NARRATIVE: CASE EVENT DATE: 20230224
